FAERS Safety Report 9470589 (Version 1)
Quarter: 2013Q3

REPORT INFORMATION
  Report Type: Spontaneous
  Country: US (occurrence: US)
  Receive Date: 20130822
  Receipt Date: 20130822
  Transmission Date: 20140515
  Serious: Yes (Hospitalization)
  Sender: FDA-Public Use
  Company Number: 2013SP002372

PATIENT
  Sex: Female

DRUGS (5)
  1. LATUDA [Suspect]
     Indication: SCHIZOPHRENIA
     Route: 048
  2. LATUDA [Suspect]
     Indication: SCHIZOPHRENIA
     Route: 048
  3. LATUDA [Suspect]
     Indication: SCHIZOPHRENIA
     Route: 048
  4. LATUDA [Suspect]
     Indication: SCHIZOPHRENIA
     Route: 048
  5. ABILIFY [Concomitant]
     Indication: PRODUCT USED FOR UNKNOWN INDICATION

REACTIONS (3)
  - Psychotic disorder [Recovered/Resolved]
  - Nausea [Recovered/Resolved]
  - Vomiting [Recovered/Resolved]
